FAERS Safety Report 4444085-5 (Version None)
Quarter: 2004Q3

REPORT INFORMATION
  Report Type: 
  Country: None (occurrence: None)
  Receive Date: 20040729
  Receipt Date: 20040323
  Transmission Date: 20050211
  Serious: Yes (Other)
  Sender: FDA-Public Use
  Company Number: US-JNJFOC-20031204947

PATIENT
  Age: 34 Year
  Sex: Male

DRUGS (3)
  1. RISPERDAL [Suspect]
     Indication: SCHIZOAFFECTIVE DISORDER
     Dosage: 1.5 MG, IN 1 DAY, ORAL; 0.5 MG, IN 1 DAY, ORAL
     Route: 048
     Dates: start: 20031214, end: 20031215
  2. RISPERDAL [Suspect]
     Indication: SCHIZOAFFECTIVE DISORDER
     Dosage: 1.5 MG, IN 1 DAY, ORAL; 0.5 MG, IN 1 DAY, ORAL
     Route: 048
     Dates: start: 20031215, end: 20031222
  3. ATENDOL (TABLETS) ATENOLOL [Concomitant]

REACTIONS (12)
  - AGEUSIA [None]
  - ANXIETY [None]
  - CONVULSION [None]
  - DIZZINESS [None]
  - DYSPNOEA [None]
  - DYSTONIA [None]
  - HEADACHE [None]
  - HEART RATE DECREASED [None]
  - HYPOAESTHESIA [None]
  - TORTICOLLIS [None]
  - TREMOR [None]
  - VISUAL ACUITY REDUCED [None]
